FAERS Safety Report 5475643-7 (Version None)
Quarter: 2007Q4

REPORT INFORMATION
  Report Type: 
  Country: None (occurrence: None)
  Receive Date: 20071001
  Receipt Date: 20070913
  Transmission Date: 20080405
  Serious: Yes (Hospitalization)
  Sender: FDA-Public Use
  Company Number: CTI_00913_2007

PATIENT
  Sex: Female
  Weight: 118.8424 kg

DRUGS (36)
  1. ZYFLO [Suspect]
     Indication: ASTHMA
     Dosage: (DF)
     Dates: start: 20070201, end: 20070201
  2. ZYFLO [Suspect]
     Indication: STATUS ASTHMATICUS
     Dosage: (DF)
     Dates: start: 20070201, end: 20070201
  3. DIOVAN [Suspect]
     Indication: DRUG USE FOR UNKNOWN INDICATION
     Dosage: (160 MG QD ORAL), (160 MG QD ORAL), (320 MG QD ORAL)
     Route: 048
     Dates: end: 20070201
  4. DIOVAN [Suspect]
     Indication: DRUG USE FOR UNKNOWN INDICATION
     Dosage: (160 MG QD ORAL), (160 MG QD ORAL), (320 MG QD ORAL)
     Route: 048
     Dates: start: 20070409, end: 20070615
  5. DIOVAN [Suspect]
     Indication: DRUG USE FOR UNKNOWN INDICATION
     Dosage: (160 MG QD ORAL), (160 MG QD ORAL), (320 MG QD ORAL)
     Route: 048
     Dates: start: 20070615
  6. BENAZEPRIL HCL [Suspect]
     Indication: DRUG USE FOR UNKNOWN INDICATION
     Dosage: (40 MG BID), (40 MG QD)
     Dates: end: 20070201
  7. MOBIC [Suspect]
     Indication: ARTHRALGIA
     Dosage: (7.5 MG, 1  DOSE QD PRN)
     Dates: end: 20070201
  8. COUMADIN [Suspect]
     Indication: ATRIAL FIBRILLATION
     Dosage: (3 MG 4X/WEEK), (5 MG 3X/WEEK)
  9. PREDNISONE [Suspect]
  10. TOPROL-XL [Concomitant]
  11. AVANDIA [Concomitant]
  12. SINGULAIR [Concomitant]
  13. QUININE SULFATE [Concomitant]
  14. ADVAIR DISKUS 100/50 [Concomitant]
  15. PROTONIX [Concomitant]
  16. LIPITOR [Concomitant]
  17. SPIRIVA [Concomitant]
  18. COMBIVENT [Concomitant]
  19. ALPRAZOLAM [Concomitant]
  20. GLUCOPHAGE [Concomitant]
  21. LASIX [Concomitant]
  22. CARDIZEM CD [Concomitant]
  23. MELATONIN [Concomitant]
  24. AMBIEN [Concomitant]
  25. POTASSIUM CHLORIDE [Concomitant]
  26. INSULIN [Concomitant]
  27. RHINOCORT [Concomitant]
  28. MACROBID [Concomitant]
  29. WELLBUTRIN [Concomitant]
  30. THEOPHYLLINE [Concomitant]
  31. MULTI-VITAMIN [Concomitant]
  32. NITROGLYCERIN [Concomitant]
  33. MAGNESIUM SULFATE [Concomitant]
  34. HORMONES NOS [Concomitant]
  35. LEXAPRO [Concomitant]
  36. ASPIRIN [Concomitant]

REACTIONS (3)
  - ATRIAL FIBRILLATION [None]
  - DRUG TOXICITY [None]
  - RENAL FAILURE ACUTE [None]
